FAERS Safety Report 5062636-7 (Version None)
Quarter: 2006Q3

REPORT INFORMATION
  Report Type: 
  Country: None (occurrence: None)
  Receive Date: 20060724
  Receipt Date: 20060706
  Transmission Date: 20061208
  Serious: Yes (Other)
  Sender: FDA-Public Use
  Company Number: 2006RR-02958

PATIENT
  Sex: 0

DRUGS (1)
  1. CLARITHROMYCIN [Suspect]
     Dosage: INTRAVENOUS
     Route: 042

REACTIONS (1)
  - EXTRAVASATION [None]
